FAERS Safety Report 6849747-8 (Version None)
Quarter: 2010Q3

REPORT INFORMATION
  Report Type: 
  Country: None (occurrence: None)
  Receive Date: 20100716
  Receipt Date: 20071004
  Transmission Date: 20110219
  Serious: No
  Sender: FDA-Public Use
  Company Number: US-PFIZER INC-2007084620

PATIENT
  Sex: Male
  Weight: 81.8 kg

DRUGS (6)
  1. CHANTIX [Suspect]
     Indication: SMOKING CESSATION THERAPY
     Dates: start: 20070927
  2. LORTAB [Concomitant]
     Indication: PAIN
  3. ATIVAN [Concomitant]
  4. FIORINAL [Concomitant]
  5. FLEXERIL [Concomitant]
  6. MOBIC [Concomitant]

REACTIONS (11)
  - ABDOMINAL DISTENSION [None]
  - DIARRHOEA [None]
  - EATING DISORDER [None]
  - ERUCTATION [None]
  - FEELING ABNORMAL [None]
  - FLATULENCE [None]
  - GASTROINTESTINAL DISORDER [None]
  - GASTROINTESTINAL PAIN [None]
  - GASTROOESOPHAGEAL REFLUX DISEASE [None]
  - INSOMNIA [None]
  - SWELLING [None]
